FAERS Safety Report 13241046 (Version 1)
Quarter: 2017Q1

REPORT INFORMATION
  Report Type: Spontaneous
  Country: US (occurrence: US)
  Receive Date: 20170216
  Receipt Date: 20170216
  Transmission Date: 20170428
  Serious: No
  Sender: FDA-Public Use
  Company Number: US-RELYPSA-RLY2016004364

PATIENT
  Sex: Female

DRUGS (16)
  1. VESICARE [Concomitant]
     Active Substance: SOLIFENACIN SUCCINATE
  2. MAGNESIUM [Concomitant]
     Active Substance: MAGNESIUM
  3. CLONIDINE HCL [Concomitant]
     Active Substance: CLONIDINE HYDROCHLORIDE
  4. ATENOLOL. [Concomitant]
     Active Substance: ATENOLOL
  5. AMLODIPINE BESYLATE. [Concomitant]
     Active Substance: AMLODIPINE BESYLATE
  6. VELTASSA [Suspect]
     Active Substance: PATIROMER
     Indication: HYPERKALAEMIA
     Dosage: 8.4 G, QD
     Route: 048
  7. ASPRIN [Concomitant]
     Active Substance: ASPIRIN
  8. LASIX [Concomitant]
     Active Substance: FUROSEMIDE
  9. SODIUM BICARBONATE. [Concomitant]
     Active Substance: SODIUM BICARBONATE
  10. SODIUM [Concomitant]
     Active Substance: SODIUM
  11. GLIPIZIDE. [Concomitant]
     Active Substance: GLIPIZIDE
  12. LORATADINE. [Concomitant]
     Active Substance: LORATADINE
  13. LEVOTHYROXINE. [Concomitant]
     Active Substance: LEVOTHYROXINE
  14. VITAMIN D3 [Concomitant]
     Active Substance: CHOLECALCIFEROL
  15. ATORVASTATIN CALCIUM. [Concomitant]
     Active Substance: ATORVASTATIN CALCIUM
  16. DOXAZOSIN MESYLATE. [Concomitant]
     Active Substance: DOXAZOSIN MESYLATE

REACTIONS (3)
  - Hypersensitivity [Unknown]
  - Nasopharyngitis [Not Recovered/Not Resolved]
  - Malaise [Unknown]
